FAERS Safety Report 14307706 (Version 4)
Quarter: 2019Q1

REPORT INFORMATION
  Report Type: Report from Study
  Country: US (occurrence: US)
  Receive Date: 20171220
  Receipt Date: 20190107
  Transmission Date: 20190417
  Serious: Yes (Other)
  Sender: FDA-Public Use
  Company Number: US-ASTELLAS-2017US054035

PATIENT
  Sex: Female

DRUGS (3)
  1. MIRABEGRON [Suspect]
     Active Substance: MIRABEGRON
     Indication: HYPERTONIC BLADDER
     Route: 048
  2. MIRABEGRON [Suspect]
     Active Substance: MIRABEGRON
     Indication: POLLAKIURIA
  3. MIRABEGRON [Suspect]
     Active Substance: MIRABEGRON
     Indication: CYSTITIS INTERSTITIAL
     Dosage: 50 UNK, UNK
     Route: 048
     Dates: start: 2017, end: 2017

REACTIONS (5)
  - Treatment noncompliance [Unknown]
  - Pollakiuria [Unknown]
  - Feeling abnormal [Unknown]
  - Bladder disorder [Unknown]
  - Pain [Unknown]
